FAERS Safety Report 8779666 (Version 2)
Quarter: 2012Q4

REPORT INFORMATION
  Report Type: 
  Country: US (occurrence: US)
  Receive Date: 20120911
  Receipt Date: 20121012
  Transmission Date: 20130627
  Serious: Yes (Hospitalization, Other)
  Sender: FDA-Public Use
  Company Number: US-PFIZER INC-2012221184

PATIENT
  Age: 64 Year
  Sex: Female
  Weight: 113 kg

DRUGS (5)
  1. ZARONTIN [Suspect]
     Indication: CONVULSION
     Dosage: 250 mg, 3x/day
     Dates: start: 20080728
  2. CARVEDILOL [Concomitant]
     Indication: HYPERTENSION
     Dosage: 25 mg, 2x/day
  3. AMLODIPINE [Concomitant]
     Indication: HYPERTENSION
     Dosage: 2.5 mg, daily
  4. LEVOTHYROXINE [Concomitant]
     Indication: THYROID DISORDER
     Dosage: 25 mg, daily
  5. HYDROCHLOROTHIAZIDE [Concomitant]
     Indication: FLUID RETENTION
     Dosage: 12.5 mg, daily

REACTIONS (2)
  - Arthropathy [Recovering/Resolving]
  - Pain [Unknown]
